FAERS Safety Report 6381687-3 (Version None)
Quarter: 2009Q3

REPORT INFORMATION
  Report Type: 
  Country: None (occurrence: None)
  Receive Date: 20090930
  Receipt Date: 20090917
  Transmission Date: 20100115
  Serious: Yes (Hospitalization, Other)
  Sender: FDA-Public Use
  Company Number: PHHY2009BR27830

PATIENT
  Sex: Male

DRUGS (6)
  1. DIOVAN [Suspect]
     Dosage: 80 MG
  2. DIOVAN [Suspect]
     Dosage: 80 MG, BID
  3. AMLOVASC [Concomitant]
  4. PURAN T4 [Concomitant]
  5. OMEPRAZOLE [Concomitant]
  6. MICARDIS [Concomitant]

REACTIONS (3)
  - BLOOD PRESSURE INCREASED [None]
  - CEREBROVASCULAR ACCIDENT [None]
  - URINARY TRACT INFECTION [None]
